FAERS Safety Report 8848616 (Version 4)
Quarter: 2015Q4

REPORT INFORMATION
  Report Type: Report from Study
  Country: US (occurrence: US)
  Receive Date: 20121018
  Receipt Date: 20151202
  Transmission Date: 20160305
  Serious: Yes (Other)
  Sender: FDA-Public Use
  Company Number: US-ROCHE-1146685

PATIENT

DRUGS (4)
  1. PEG-INTERFERON LAMBDA [Suspect]
     Active Substance: PEGINTERFERON LAMBDA-1A
     Route: 065
  2. PEG-INTERFERON LAMBDA [Suspect]
     Active Substance: PEGINTERFERON LAMBDA-1A
     Indication: CHRONIC HEPATITIS C
     Route: 065
  3. RIBAVIRIN. [Suspect]
     Active Substance: RIBAVIRIN
     Indication: CHRONIC HEPATITIS C
     Route: 048
  4. PEG-INTERFERON LAMBDA [Suspect]
     Active Substance: PEGINTERFERON LAMBDA-1A
     Route: 065

REACTIONS (1)
  - Uveitis [Unknown]
